FAERS Safety Report 12187917 (Version 1)
Quarter: 2016Q1

REPORT INFORMATION
  Report Type: Spontaneous
  Country: PT (occurrence: PT)
  Receive Date: 20160317
  Receipt Date: 20160317
  Transmission Date: 20160526
  Serious: Yes (Other)
  Sender: FDA-Public Use
  Company Number: PHHY2016PT032979

PATIENT
  Age: 18 Year
  Sex: Male

DRUGS (3)
  1. FLUORESCEINE [Suspect]
     Active Substance: FLUORESCEIN SODIUM
     Indication: ANGIOGRAM RETINA
     Dosage: 100 MG/ML, UNK
     Route: 042
  2. FLUTICASONE [Concomitant]
     Active Substance: FLUTICASONE\FLUTICASONE PROPIONATE
     Indication: RHINITIS ALLERGIC
     Dosage: UNK
     Route: 045
  3. DESLORATADIN [Concomitant]
     Indication: RHINITIS ALLERGIC
     Dosage: UNK
     Route: 048

REACTIONS (3)
  - Pruritus [Recovered/Resolved]
  - Urticaria [Recovered/Resolved]
  - Rash maculo-papular [Recovered/Resolved]
